FAERS Safety Report 6595834-1 (Version None)
Quarter: 2010Q1

REPORT INFORMATION
  Report Type: 
  Country: None (occurrence: None)
  Receive Date: 20100219
  Receipt Date: 20100219
  Transmission Date: 20100710
  Serious: Yes (Other)
  Sender: FDA-Public Use
  Company Number: None

PATIENT
  Sex: Female
  Weight: 62.5964 kg

DRUGS (1)
  1. GABAPENTIN [Suspect]
     Indication: BACK PAIN
     Dosage: 300 MG- CAP TWO TIMES A DAY ORAL
     Route: 048
     Dates: start: 20091218, end: 20091228

REACTIONS (1)
  - VISION BLURRED [None]
